FAERS Safety Report 14186755 (Version 1)
Quarter: 2017Q4

REPORT INFORMATION
  Report Type: Spontaneous
  Country: FR (occurrence: FR)
  Receive Date: 20171114
  Receipt Date: 20171114
  Transmission Date: 20180321
  Serious: Yes (Other)
  Sender: FDA-Public Use
  Company Number: FR-MERCK KGAA-2033972

PATIENT
  Age: 32 Year
  Sex: Female

DRUGS (1)
  1. NOVOTHYROX [Suspect]
     Active Substance: LEVOTHYROXINE SODIUM
     Indication: THYROID MASS
     Route: 048
     Dates: end: 20170907

REACTIONS (8)
  - Fatigue [Recovered/Resolved]
  - Headache [Recovered/Resolved]
  - Blood thyroid stimulating hormone increased [Unknown]
  - Weight increased [Recovered/Resolved]
  - Depressed mood [Recovered/Resolved]
  - Muscular weakness [Recovered/Resolved]
  - Gastrointestinal disorder [Recovering/Resolving]
  - Abdominal distension [Recovering/Resolving]

NARRATIVE: CASE EVENT DATE: 20170601
